FAERS Safety Report 9550474 (Version 1)
Quarter: 2013Q3

REPORT INFORMATION
  Report Type: Spontaneous
  Country: US (occurrence: US)
  Receive Date: 20130924
  Receipt Date: 20130924
  Transmission Date: 20140515
  Serious: No
  Sender: FDA-Public Use
  Company Number: US-SANOFI-AVENTIS-2013SA080631

PATIENT
  Age: 57 Year
  Sex: Female

DRUGS (1)
  1. AUBAGIO [Suspect]
     Route: 065

REACTIONS (6)
  - Fatigue [Unknown]
  - Neuropathy peripheral [Unknown]
  - Fall [Unknown]
  - Diarrhoea [Unknown]
  - Alopecia [Unknown]
  - Hepatic enzyme increased [Unknown]
